FAERS Safety Report 17012368 (Version 5)
Quarter: 2020Q2

REPORT INFORMATION
  Report Type: Report from Study
  Country: US (occurrence: US)
  Receive Date: 20191108
  Receipt Date: 20200610
  Transmission Date: 20200713
  Serious: Yes (Hospitalization)
  Sender: FDA-Public Use
  Company Number: US-ACTELION-A-NJ2019-193170

PATIENT
  Age: 28 Year
  Sex: Female

DRUGS (5)
  1. OPSUMIT [Suspect]
     Active Substance: MACITENTAN
     Indication: PULMONARY ARTERIAL HYPERTENSION
     Dosage: 10 MG, QD
     Route: 048
     Dates: start: 20190529
  2. REMODULIN [Suspect]
     Active Substance: TREPROSTINIL
     Dosage: 39.5 NG/KG, PER MIN
     Route: 058
  3. ADEMPAS [Concomitant]
     Active Substance: RIOCIGUAT
  4. REMODULIN [Suspect]
     Active Substance: TREPROSTINIL
     Indication: PRODUCT USED FOR UNKNOWN INDICATION
     Dosage: 40 NG/KG, PER MIN
     Route: 058
     Dates: start: 2019
  5. REVATIO [Concomitant]
     Active Substance: SILDENAFIL CITRATE
     Dosage: 20 MG, TID
     Dates: start: 2019

REACTIONS (15)
  - Hospitalisation [Unknown]
  - Fall [Unknown]
  - Diarrhoea [Unknown]
  - Dyspnoea [Unknown]
  - Chest discomfort [Unknown]
  - Hypotension [Unknown]
  - Headache [Not Recovered/Not Resolved]
  - Nausea [Unknown]
  - Decreased appetite [Unknown]
  - Pulmonary hypertension [Unknown]
  - Product dose omission [Recovered/Resolved]
  - Dizziness [Unknown]
  - Vomiting [Unknown]
  - Treatment noncompliance [Unknown]
  - Chest pain [Unknown]

NARRATIVE: CASE EVENT DATE: 20191027
